FAERS Safety Report 7556559-9 (Version None)
Quarter: 2011Q2

REPORT INFORMATION
  Report Type: 
  Country: None (occurrence: None)
  Receive Date: 20110620
  Receipt Date: 20110609
  Transmission Date: 20111010
  Serious: Yes (Death, Hospitalization, Other)
  Sender: FDA-Public Use
  Company Number: ES-ELI_LILLY_AND_COMPANY-ES201105007872

PATIENT
  Sex: Male
  Weight: 64 kg

DRUGS (2)
  1. VALSARTAN [Concomitant]
     Indication: HYPERTENSION
     Dosage: UNK, QD
     Route: 065
     Dates: end: 20110518
  2. FORTEO [Suspect]
     Indication: OSTEOPOROSIS
     Dosage: 20 UG, QD
     Route: 058
     Dates: start: 20101224, end: 20110517

REACTIONS (1)
  - NEOPLASM PROGRESSION [None]
